FAERS Safety Report 8360367-9 (Version None)
Quarter: 2012Q2

REPORT INFORMATION
  Report Type: 
  Country: None (occurrence: None)
  Receive Date: 20120515
  Receipt Date: 20120507
  Transmission Date: 20120825
  Serious: Yes (Hospitalization)
  Sender: FDA-Public Use
  Company Number: US-BAYER-2011-066865

PATIENT
  Age: 17 Year
  Sex: Female
  Weight: 88.435 kg

DRUGS (9)
  1. ORLISTAT [Concomitant]
     Indication: WEIGHT DECREASED
     Dosage: UNK
     Dates: start: 20080907, end: 20081008
  2. YAZ [Suspect]
     Indication: CONTRACEPTION
     Dosage: UNK
     Dates: start: 20080527, end: 20090501
  3. XENICAL [Concomitant]
     Indication: WEIGHT DECREASED
     Dosage: 120 MG, UNK
     Dates: start: 20080731, end: 20081203
  4. ADIPEX-P [Concomitant]
     Indication: WEIGHT DECREASED
     Dosage: 37.5 MG, UNK
  5. XENICAL [Concomitant]
     Dosage: UNK
     Dates: start: 20090720
  6. MINOCIN [Concomitant]
     Indication: ACNE
     Dosage: 100 MG, UNK
     Dates: start: 20080104, end: 20091001
  7. WELLBUTRIN SR [Concomitant]
     Indication: DEPRESSION
     Dosage: 150 MG, UNK
     Dates: start: 20080104, end: 20091118
  8. BENTYL [Concomitant]
     Dosage: 20 MG, UNK
  9. RETIN-A [Concomitant]
     Indication: ACNE
     Dosage: 0.025 %, UNK
     Dates: start: 20080117, end: 20090901

REACTIONS (8)
  - ABDOMINAL PAIN [None]
  - VOMITING [None]
  - CHOLECYSTITIS CHRONIC [None]
  - GENERAL PHYSICAL HEALTH DETERIORATION [None]
  - ANXIETY [None]
  - EMOTIONAL DISTRESS [None]
  - DYSPEPSIA [None]
  - DIARRHOEA [None]
